FAERS Safety Report 23388864 (Version 2)
Quarter: 2024Q2

REPORT INFORMATION
  Report Type: Spontaneous
  Country: JP (occurrence: JP)
  Receive Date: 20240110
  Receipt Date: 20240404
  Transmission Date: 20240715
  Serious: Yes (Hospitalization)
  Sender: FDA-Public Use
  Company Number: JP-BAYER-2024A003962

PATIENT
  Age: 73 Year
  Sex: Male

DRUGS (4)
  1. NUBEQA [Suspect]
     Active Substance: DAROLUTAMIDE
     Dosage: DAILY DOSE 4 DF
     Route: 048
     Dates: start: 20231106, end: 20240201
  2. DOCETAXEL [Suspect]
     Active Substance: DOCETAXEL\DOCETAXEL ANHYDROUS
     Dosage: DAILY DOSE 11 MG
     Dates: start: 20231207, end: 20231207
  3. DOCETAXEL [Suspect]
     Active Substance: DOCETAXEL\DOCETAXEL ANHYDROUS
     Dosage: DAILY DOSE 80 MG
     Dates: start: 20231207, end: 20231207
  4. DENOSUMAB [Suspect]
     Active Substance: DENOSUMAB
     Dosage: DAILY DOSE 120 MG
     Dates: start: 20231207, end: 20231207

REACTIONS (2)
  - Disseminated intravascular coagulation [Recovered/Resolved]
  - Prostatic specific antigen increased [None]

NARRATIVE: CASE EVENT DATE: 20231209
